FAERS Safety Report 23604440 (Version 1)
Quarter: 2024Q1

REPORT INFORMATION
  Report Type: Spontaneous
  Country: US (occurrence: US)
  Receive Date: 20240307
  Receipt Date: 20240307
  Transmission Date: 20240410
  Serious: Yes (Death)
  Sender: FDA-Public Use
  Company Number: US-AMGEN-USASP2024044354

PATIENT

DRUGS (3)
  1. FILGRASTIM [Suspect]
     Active Substance: FILGRASTIM
     Indication: Acute myeloid leukaemia
     Dosage: UNK
     Route: 065
  2. CLADRIBINE [Concomitant]
     Active Substance: CLADRIBINE
  3. CYTARABINE [Concomitant]
     Active Substance: CYTARABINE

REACTIONS (1)
  - Death [Fatal]
